FAERS Safety Report 26072763 (Version 1)
Quarter: 2025Q4

REPORT INFORMATION
  Report Type: Spontaneous
  Country: EU (occurrence: EU)
  Receive Date: 20251121
  Receipt Date: 20251121
  Transmission Date: 20260117
  Serious: Yes (Other)
  Sender: ACCORD
  Company Number: None

PATIENT
  Age: 38 Year
  Sex: Female
  Weight: 74 kg

DRUGS (6)
  1. METHOTREXATE SODIUM [Suspect]
     Active Substance: METHOTREXATE SODIUM
     Indication: Bacterial infection
     Dates: start: 20240719, end: 20250825
  2. OFLOXACIN [Suspect]
     Active Substance: OFLOXACIN
     Indication: Bacterial infection
     Dosage: STRENGTH: 200 MG, SCORED FILM-COATED TABLET
     Dates: start: 20250822, end: 20250825
  3. MORPHINE SULFATE [Concomitant]
     Active Substance: MORPHINE SULFATE
  4. ACUPAN [Concomitant]
     Active Substance: NEFOPAM HYDROCHLORIDE
  5. SPASFON [Concomitant]
  6. VOGALENE [Concomitant]
     Active Substance: METOPIMAZINE

REACTIONS (1)
  - Hepatic cytolysis [Not Recovered/Not Resolved]

NARRATIVE: CASE EVENT DATE: 20250825
